FAERS Safety Report 4555862-4 (Version None)
Quarter: 2005Q1

REPORT INFORMATION
  Report Type: 
  Country: None (occurrence: None)
  Receive Date: 20050118
  Receipt Date: 20041208
  Transmission Date: 20050727
  Serious: No
  Sender: FDA-Public Use
  Company Number: A03200404150

PATIENT
  Age: 77 Year
  Sex: Male

DRUGS (5)
  1. UROXATRAL [Suspect]
     Indication: BENIGN PROSTATIC HYPERPLASIA
     Dosage: 10 MG OD - ORAL
     Route: 048
     Dates: start: 20041101
  2. LANSOPRAZOLE [Concomitant]
  3. EPOGEN [Concomitant]
  4. IRON [Concomitant]
  5. METOPROLOL TARTRATE [Concomitant]

REACTIONS (1)
  - PRURITUS [None]
